FAERS Safety Report 9421142 (Version 2)
Quarter: 2013Q4

REPORT INFORMATION
  Report Type: Spontaneous
  Country: GB (occurrence: GB)
  Receive Date: 20130725
  Receipt Date: 20131206
  Transmission Date: 20140711
  Serious: Yes (Other)
  Sender: FDA-Public Use
  Company Number: PHHY2013GB076990

PATIENT
  Sex: 0

DRUGS (4)
  1. ATORVASTATIN [Suspect]
     Indication: BLOOD CHOLESTEROL INCREASED
     Dosage: 10 MG
     Dates: start: 20130411, end: 20130601
  2. FLUOXETINE [Concomitant]
     Dosage: 20 MG, UNK
     Dates: start: 2010
  3. LEVOTHYROXINE [Concomitant]
     Dosage: 125 UG, FOR OVER 20 YEARS
  4. AMLODIPINE [Concomitant]
     Indication: HYPERTENSION
     Dosage: 10 MG, 10 YEARS

REACTIONS (7)
  - Paranoia [Recovered/Resolved]
  - Anxiety [Recovered/Resolved]
  - Personality change [Recovered/Resolved]
  - Movement disorder [Recovered/Resolved]
  - Muscular weakness [Recovered/Resolved]
  - Depression [Unknown]
  - Fatigue [Recovered/Resolved]
